FAERS Safety Report 6770289-2 (Version None)
Quarter: 2010Q2

REPORT INFORMATION
  Report Type: 
  Country: None (occurrence: None)
  Receive Date: 20100607
  Receipt Date: 20100524
  Transmission Date: 20101027
  Serious: Yes (Hospitalization)
  Sender: FDA-Public Use
  Company Number: 2010SP028779

PATIENT
  Age: 57 Year
  Sex: Female

DRUGS (6)
  1. BOCEPREVIR [Suspect]
     Indication: HEPATITIS C
     Dosage: 800 MCG; QD; PO
     Route: 048
     Dates: start: 20100430, end: 20100522
  2. BOCEPREVIR [Suspect]
     Indication: HEPATITIS C
     Dosage: 800 MCG; QD; PO
     Route: 048
     Dates: start: 20100523
  3. PEG-INTRON [Suspect]
     Indication: HEPATITIS C
     Dosage: 80 MCG; QW; SC
     Route: 058
     Dates: start: 20100401, end: 20100521
  4. RIBAVIRIN [Suspect]
     Indication: HEPATITIS C
     Dosage: 600 MG; QD; PO 400 MG; QD PO PO
     Route: 048
     Dates: start: 20100401, end: 20100522
  5. RIBAVIRIN [Suspect]
     Indication: HEPATITIS C
     Dosage: 600 MG; QD; PO 400 MG; QD PO PO
     Route: 048
     Dates: start: 20100518
  6. RIBAVIRIN [Suspect]
     Indication: HEPATITIS C
     Dosage: 600 MG; QD; PO 400 MG; QD PO PO
     Route: 048
     Dates: start: 20100523

REACTIONS (4)
  - BLOOD POTASSIUM DECREASED [None]
  - HYPONATRAEMIA [None]
  - TACHYCARDIA [None]
  - UPPER RESPIRATORY TRACT INFECTION [None]
